FAERS Safety Report 7765354-7 (Version None)
Quarter: 2011Q3

REPORT INFORMATION
  Report Type: 
  Country: None (occurrence: None)
  Receive Date: 20110921
  Receipt Date: 20110913
  Transmission Date: 20111222
  Serious: Yes (Other)
  Sender: FDA-Public Use
  Company Number: CHPA2011US12428

PATIENT
  Age: 31 Year
  Sex: Female

DRUGS (1)
  1. EXCEDRIN (MIGRAINE) [Suspect]
     Indication: BACK PAIN
     Dosage: 2 DF, ONCE/SINGLE
     Route: 048
     Dates: start: 20110913, end: 20110913

REACTIONS (3)
  - BLINDNESS UNILATERAL [None]
  - BLINDNESS [None]
  - NAUSEA [None]
